FAERS Safety Report 18132611 (Version 1)
Quarter: 2020Q3

REPORT INFORMATION
  Report Type: Spontaneous
  Country: DE (occurrence: DE)
  Receive Date: 20200811
  Receipt Date: 20200811
  Transmission Date: 20201103
  Serious: Yes (Hospitalization)
  Sender: FDA-Public Use
  Company Number: DE-TEVA-2020-DE-1813568

PATIENT
  Age: 64 Year
  Sex: Male

DRUGS (3)
  1. FOSTER 6 MIKROGRAMM/100 MIKROGRAMM [Concomitant]
     Dosage: NK NK, NK
  2. CEFUROXIM [Suspect]
     Active Substance: CEFUROXIME
     Dosage: NK NK, NK
     Route: 065
  3. DOXYCYCLIN [Suspect]
     Active Substance: DOXYCYCLINE
     Dosage: NK NK, NK
     Route: 065

REACTIONS (6)
  - Cough [Unknown]
  - Herpes zoster [Unknown]
  - Bronchospasm [Unknown]
  - Localised infection [Unknown]
  - Sputum discoloured [Unknown]
  - Bronchitis [Unknown]
